FAERS Safety Report 6425871-9 (Version None)
Quarter: 2009Q4

REPORT INFORMATION
  Report Type: 
  Country: None (occurrence: None)
  Receive Date: 20091103
  Receipt Date: 20091021
  Transmission Date: 20100525
  Serious: No
  Sender: FDA-Public Use
  Company Number: US-ABBOTT-09P-163-0604721-00

PATIENT
  Sex: Female
  Weight: 73.548 kg

DRUGS (2)
  1. BIAXIN [Suspect]
     Indication: URINARY TRACT INFECTION
     Dosage: ONE DOSE - UNSURE OF STRENGTH
     Route: 048
     Dates: start: 20070101, end: 20070101
  2. LITHIUM [Concomitant]
     Indication: BIPOLAR DISORDER
     Route: 048

REACTIONS (3)
  - PRURITUS [None]
  - RASH [None]
  - URTICARIA [None]
